FAERS Safety Report 18632704 (Version 1)
Quarter: 2020Q4

REPORT INFORMATION
  Report Type: Report from Study
  Country: US (occurrence: US)
  Receive Date: 20201218
  Receipt Date: 20201218
  Transmission Date: 20210114
  Serious: No
  Sender: FDA-Public Use
  Company Number: NVSC2020US332099

PATIENT
  Sex: Female

DRUGS (3)
  1. LISINOPRIL. [Suspect]
     Active Substance: LISINOPRIL
     Indication: HYPERTENSION
     Dosage: 5 MG, QD (ONE MONTH AGO)
     Route: 065
  2. XIIDRA [Suspect]
     Active Substance: LIFITEGRAST
     Indication: SJOGREN^S SYNDROME
     Dosage: 5 %, BID
     Route: 047
     Dates: start: 202009
  3. XIIDRA [Suspect]
     Active Substance: LIFITEGRAST
     Indication: KERATITIS

REACTIONS (4)
  - Sinusitis [Unknown]
  - Throat tightness [Unknown]
  - Vertigo [Unknown]
  - Headache [Unknown]
